FAERS Safety Report 8398497-8 (Version None)
Quarter: 2012Q2

REPORT INFORMATION
  Report Type: 
  Country: None (occurrence: None)
  Receive Date: 20120531
  Receipt Date: 20120517
  Transmission Date: 20120825
  Serious: No
  Sender: FDA-Public Use
  Company Number: US-BAYER-2012-037470

PATIENT
  Age: 66 Year
  Sex: Male

DRUGS (10)
  1. NORVASC [Concomitant]
  2. STALEVO 100 [Concomitant]
  3. PAXIL [Concomitant]
  4. KLONOPIN [Concomitant]
  5. MAXZIDE [Concomitant]
  6. LEVITRA [Suspect]
  7. LIPITOR [Concomitant]
  8. WELLBUTRIN [Concomitant]
  9. PROSCAR [Concomitant]
  10. NEXIUM [Concomitant]

REACTIONS (1)
  - ERECTILE DYSFUNCTION [None]
